FAERS Safety Report 16887444 (Version 8)
Quarter: 2022Q1

REPORT INFORMATION
  Report Type: Spontaneous
  Country: CA (occurrence: CA)
  Receive Date: 20191004
  Receipt Date: 20220307
  Transmission Date: 20220423
  Serious: Yes (Death, Life-Threatening, Hospitalization, Other)
  Sender: FDA-Public Use
  Company Number: CA-MLMSERVICE-20190919-1962447-1

PATIENT
  Age: 50 Year
  Sex: Male

DRUGS (11)
  1. AMLODIPINE [Suspect]
     Active Substance: AMLODIPINE BESYLATE
     Indication: Product used for unknown indication
     Dosage: UNK
     Route: 065
  2. AMLODIPINE [Suspect]
     Active Substance: AMLODIPINE BESYLATE
     Indication: Product used for unknown indication
     Dosage: UNK
     Route: 065
  3. LISINOPRIL [Suspect]
     Active Substance: LISINOPRIL
     Indication: Congenital cystic kidney disease
     Dosage: UNK
     Route: 048
  4. VENLAFAXINE HYDROCHLORIDE [Suspect]
     Active Substance: VENLAFAXINE HYDROCHLORIDE
     Indication: Congenital cystic kidney disease
     Dosage: UNK
     Route: 065
  5. ALLOPURINOL [Suspect]
     Active Substance: ALLOPURINOL
     Indication: Congenital cystic kidney disease
     Dosage: UNK
     Route: 065
  6. DIPHENHYDRAMINE [Suspect]
     Active Substance: DIPHENHYDRAMINE
     Indication: Angioedema
     Dosage: UNK
     Route: 065
  7. EPINEPHRINE [Suspect]
     Active Substance: EPINEPHRINE
     Indication: Angioedema
     Dosage: UNK
     Route: 065
  8. TOLVAPTAN [Suspect]
     Active Substance: TOLVAPTAN
     Indication: Product used for unknown indication
     Dosage: UNK
     Route: 065
  9. PRINIVIL [Suspect]
     Active Substance: LISINOPRIL
     Indication: Product used for unknown indication
     Dosage: UNK
     Route: 065
  10. RANITIDINE [Suspect]
     Active Substance: RANITIDINE
     Indication: Angioedema
     Dosage: UNK
     Route: 065
  11. TOLVAPTAN [Concomitant]
     Active Substance: TOLVAPTAN
     Indication: Congenital cystic kidney disease
     Dosage: UNK
     Route: 065

REACTIONS (7)
  - Angioedema [Fatal]
  - Death [Fatal]
  - Dysarthria [Recovered/Resolved]
  - Eyelid oedema [Recovered/Resolved]
  - Face oedema [Recovered/Resolved]
  - Tongue oedema [Recovered/Resolved]
  - Drug ineffective [Recovered/Resolved]
